FAERS Safety Report 23869821 (Version 2)
Quarter: 2025Q1

REPORT INFORMATION
  Report Type: Report from Study
  Country: US (occurrence: US)
  Receive Date: 20240517
  Receipt Date: 20250220
  Transmission Date: 20250408
  Serious: Yes (Other)
  Sender: ROCHE
  Company Number: US-ROCHE-3519373

PATIENT
  Age: 34 Year
  Sex: Female

DRUGS (12)
  1. OCREVUS [Suspect]
     Active Substance: OCRELIZUMAB
     Indication: Relapsing multiple sclerosis
     Route: 040
  2. EXTAVIA [Concomitant]
     Active Substance: INTERFERON BETA-1B
  3. REBIF [Concomitant]
     Active Substance: INTERFERON BETA-1A
  4. TYSABRI [Concomitant]
     Active Substance: NATALIZUMAB
  5. TECFIDERA [Concomitant]
     Active Substance: DIMETHYL FUMARATE
  6. ZOVIRAX [Concomitant]
     Active Substance: ACYCLOVIR
  7. ADDERALL [Concomitant]
     Active Substance: AMPHETAMINE ASPARTATE\AMPHETAMINE SULFATE\DEXTROAMPHETAMINE SACCHARATE\DEXTROAMPHETAMINE SULFATE
  8. BENZACLIN [Concomitant]
     Active Substance: BENZOYL PEROXIDE\CLINDAMYCIN PHOSPHATE
  9. PRISTIQ EXTENDED-RELEASE [Concomitant]
     Active Substance: DESVENLAFAXINE SUCCINATE
  10. VOLTAREN [Concomitant]
     Active Substance: DICLOFENAC SODIUM
  11. IBUPROFEN [Concomitant]
     Active Substance: IBUPROFEN
  12. TRETINOIN [Concomitant]
     Active Substance: TRETINOIN

REACTIONS (13)
  - Headache [Unknown]
  - Maternal exposure before pregnancy [Unknown]
  - Irritable bowel syndrome [Unknown]
  - Vitamin D deficiency [Unknown]
  - Depression [Unknown]
  - Anxiety [Unknown]
  - Obesity [Unknown]
  - Cyst [Unknown]
  - Oligohydramnios [Unknown]
  - Streptococcus test positive [Unknown]
  - Refraction disorder [Unknown]
  - Cervicitis [Unknown]
  - Glaucoma [Unknown]
